FAERS Safety Report 7942172-8 (Version None)
Quarter: 2011Q4

REPORT INFORMATION
  Report Type: 
  Country: None (occurrence: None)
  Receive Date: 20111122
  Receipt Date: 20111116
  Transmission Date: 20120403
  Serious: Yes (Other)
  Sender: FDA-Public Use
  Company Number: AUR-APL-2011-05852

PATIENT
  Age: 47 Year
  Sex: Female
  Weight: 89 kg

DRUGS (7)
  1. ESTRADIOL [Concomitant]
  2. LEVOTHYROXINE SODIUM [Concomitant]
  3. FLOXACILLIN SODIUM [Concomitant]
  4. RAMIPRIL [Suspect]
     Indication: PRODUCT USED FOR UNKNOWN INDICATION
     Dates: start: 20111107
  5. CIPROFLOXACIN [Concomitant]
  6. PHENOXYMETHYLPENICILLIN [Concomitant]
  7. LANSOPRAZOLE [Concomitant]

REACTIONS (3)
  - NAUSEA [None]
  - CONDITION AGGRAVATED [None]
  - ARTHRALGIA [None]
